FAERS Safety Report 18123398 (Version 2)
Quarter: 2020Q3

REPORT INFORMATION
  Report Type: Report from Study
  Country: US (occurrence: US)
  Receive Date: 20200807
  Receipt Date: 20200904
  Transmission Date: 20201103
  Serious: No
  Sender: FDA-Public Use
  Company Number: NVSC2020US215740

PATIENT
  Sex: Female

DRUGS (1)
  1. COSENTYX [Suspect]
     Active Substance: SECUKINUMAB
     Indication: ANKYLOSING SPONDYLITIS
     Dosage: UNK, BENEATH THE SKIN, USUALLY VIA INJECTION
     Route: 058

REACTIONS (5)
  - Back pain [Unknown]
  - Spinal pain [Unknown]
  - Drug ineffective [Unknown]
  - Pain in extremity [Unknown]
  - Cough [Unknown]
